FAERS Safety Report 9307826 (Version 1)
Quarter: 2013Q2

REPORT INFORMATION
  Report Type: Report from Study
  Country: US (occurrence: US)
  Receive Date: 20130524
  Receipt Date: 20130524
  Transmission Date: 20140414
  Serious: Yes (Other)
  Sender: FDA-Public Use
  Company Number: US-ABBOTT-13P-163-1091137-00

PATIENT
  Age: 55 Year
  Sex: Male

DRUGS (3)
  1. HUMIRA [Suspect]
     Indication: PSORIASIS
     Dates: start: 2008
  2. HUMIRA [Suspect]
     Indication: PSORIATIC ARTHROPATHY
  3. PRILOSEC [Concomitant]
     Indication: GASTROOESOPHAGEAL REFLUX DISEASE

REACTIONS (4)
  - Meniscus injury [Recovered/Resolved]
  - Intervertebral disc protrusion [Recovered/Resolved]
  - Morton^s neuroma [Recovered/Resolved]
  - Wrong technique in drug usage process [Recovered/Resolved]
